FAERS Safety Report 6641220-5 (Version None)
Quarter: 2010Q1

REPORT INFORMATION
  Report Type: 
  Country: None (occurrence: None)
  Receive Date: 20100318
  Receipt Date: 20100315
  Transmission Date: 20100710
  Serious: Yes (Death, Life-Threatening, Hospitalization, Other)
  Sender: FDA-Public Use
  Company Number: PHEH2008US06599

PATIENT
  Sex: Male
  Weight: 100.6 kg

DRUGS (45)
  1. ZOMETA [Suspect]
     Indication: METASTASES TO BONE
     Dosage: UNK
     Route: 042
     Dates: start: 20070611, end: 20080403
  2. CHEMOTHERAPEUTICS NOS [Concomitant]
  3. RADIATION THERAPY [Concomitant]
  4. COUMADIN [Concomitant]
     Dosage: 5 MG / DAILY
  5. SORAFENIB [Concomitant]
     Dosage: UNK
     Dates: start: 20070801, end: 20071201
  6. HYDROCODONE [Concomitant]
  7. MORPHINE SULFATE [Concomitant]
  8. DEXAMETHASONE [Concomitant]
  9. ENALAPRIL MALEATE [Concomitant]
  10. OMEPRAZOLE [Concomitant]
  11. MULTI-VITAMINS [Concomitant]
  12. FERROUS SULFATE TAB [Concomitant]
  13. LACTULOSE [Concomitant]
  14. ALDACTONE [Concomitant]
     Dosage: 50 MG BY MOUTH, TWICE DAILY
  15. DECADRON [Concomitant]
     Dosage: UNK
     Dates: end: 20080701
  16. KEFLEX [Concomitant]
     Dosage: 500 MG 3 TIMES DAILY
     Dates: start: 20080303, end: 20080313
  17. PREDNISONE [Concomitant]
     Dosage: UNK
  18. SUTENT [Concomitant]
     Indication: RENAL CANCER
     Dosage: 50 MG / DAILY
     Dates: start: 20070501, end: 20070601
  19. SUTENT [Concomitant]
     Dosage: 37.5 MG / DAILY
     Dates: start: 20070717, end: 20070801
  20. FUROSEMIDE [Concomitant]
     Dosage: UNK
  21. LEVAQUIN [Concomitant]
     Dosage: UNK
  22. PRILOSEC [Concomitant]
     Dosage: 20 MG, BY MOUTH, DAILY
  23. CEPHALEXIN [Concomitant]
     Dosage: 500 MG, BY MOUTH 3 TIMES DAILY
     Dates: start: 20080713
  24. VANCOMYCIN [Concomitant]
     Dosage: INTRAVENOUS
  25. BACTRIM DS [Concomitant]
     Dosage: 160 MG, 1 TAB, 2 TIMES DAILY
  26. CEFAZOLIN [Concomitant]
     Dosage: UNK
  27. TOPROL-XL [Concomitant]
     Dosage: 25 MG BY MOUTH AT NIGHT
  28. PREVIDENT [Concomitant]
  29. ALBUTEROL [Concomitant]
     Dosage: 1 NEBULIZER
  30. FLUCONAZOLE [Concomitant]
     Dosage: 100 MG 1 TABLET BY MOUTH DAILY
  31. HYDROCORTISONE [Concomitant]
     Dosage: 100 MG INTRAVENOUS EVERY 12 HOURS
  32. ACYCLOVIR [Concomitant]
     Dosage: 5% 15 GM  OINTMENT, APPLY TO RASH ON BACK
  33. PHOSPHORUS [Concomitant]
     Dosage: UNK
  34. NEXAVAR [Concomitant]
     Dosage: 400 MG / BID
     Route: 048
  35. LOVENOX [Concomitant]
     Dosage: 40 MG SUBCUTANEOUS DAILY
  36. LASIX [Concomitant]
     Dosage: UNK
  37. KEFLEX [Concomitant]
     Dosage: UNK
  38. LORTAB [Concomitant]
     Dosage: UNK
  39. NYSTATIN [Concomitant]
     Dosage: UNK
  40. PROTONIX [Concomitant]
  41. LISINOPRIL [Concomitant]
  42. OXYCODONE [Concomitant]
     Indication: PAIN
  43. FLAGYL [Concomitant]
     Dosage: 500 MG, UNK
  44. PENICILLIN ^GRUNENTHAL^ [Concomitant]
  45. OXYCONTIN [Concomitant]

REACTIONS (60)
  - ABDOMINAL MASS [None]
  - ABDOMINAL NEOPLASM [None]
  - ABDOMINAL OPERATION [None]
  - ABDOMINAL PAIN [None]
  - ADRENAL INSUFFICIENCY [None]
  - ANXIETY [None]
  - ASCITES [None]
  - ATELECTASIS [None]
  - BACTERIAL DISEASE CARRIER [None]
  - BLADDER CANCER [None]
  - BONE DISORDER [None]
  - CELLULITIS [None]
  - CEREBRAL ISCHAEMIA [None]
  - COLOSTOMY [None]
  - COMPRESSION FRACTURE [None]
  - DEATH [None]
  - DECREASED INTEREST [None]
  - DEHYDRATION [None]
  - DIZZINESS [None]
  - DYSPNOEA [None]
  - DYSPNOEA EXERTIONAL [None]
  - ENDOTRACHEAL INTUBATION [None]
  - EPISTAXIS [None]
  - EXCORIATION [None]
  - FALL [None]
  - HAEMORRHAGE [None]
  - HEPATOMEGALY [None]
  - HERPES ZOSTER [None]
  - HYPONATRAEMIA [None]
  - HYPOPHOSPHATAEMIA [None]
  - HYPOTENSION [None]
  - IMPAIRED HEALING [None]
  - INJURY [None]
  - INTESTINAL ISCHAEMIA [None]
  - INTESTINAL PERFORATION [None]
  - JAW OPERATION [None]
  - LEUKOPENIA [None]
  - MALIGNANT MESENTERIC NEOPLASM [None]
  - MALNUTRITION [None]
  - METASTASES TO LYMPH NODES [None]
  - METASTASES TO SPINE [None]
  - METASTATIC RENAL CELL CARCINOMA [None]
  - NAUSEA [None]
  - OBESITY [None]
  - OSTEONECROSIS [None]
  - PAIN [None]
  - PAIN IN EXTREMITY [None]
  - PERITONITIS [None]
  - PNEUMONIA [None]
  - PULMONARY CONGESTION [None]
  - RALES [None]
  - RESPIRATORY DISTRESS [None]
  - RESUSCITATION [None]
  - SEPSIS [None]
  - SMALL INTESTINAL OBSTRUCTION [None]
  - SURGERY [None]
  - TUMOUR EMBOLISM [None]
  - VASCULAR CAUTERISATION [None]
  - VOMITING [None]
  - WOUND DEHISCENCE [None]
